FAERS Safety Report 9290969 (Version 1)
Quarter: 2013Q2

REPORT INFORMATION
  Report Type: Spontaneous
  Country: CA (occurrence: None)
  Receive Date: 20130513
  Receipt Date: 20130513
  Transmission Date: 20140414
  Serious: No
  Sender: FDA-Public Use
  Company Number: TPA2013A03393

PATIENT
  Age: 42 Year
  Sex: Female

DRUGS (3)
  1. DEXILANT (DEXLANSOPRAZOLE) [Suspect]
     Dosage: 60MG 1 IN 1 D1
     Route: 048
  2. ANTIDEPRESSANTS (ANTIDEPRESSANTS) [Concomitant]
  3. REBIT (INTERFERON BETA-1A) [Concomitant]

REACTIONS (4)
  - Haemoglobin decreased [None]
  - Rash morbilliform [None]
  - Angioedema [None]
  - Diarrhoea [None]
